FAERS Safety Report 5245866-0 (Version None)
Quarter: 2007Q1

REPORT INFORMATION
  Report Type: 
  Country: None (occurrence: None)
  Receive Date: 20070223
  Receipt Date: 20070214
  Transmission Date: 20070707
  Serious: Yes (Hospitalization)
  Sender: FDA-Public Use
  Company Number: GB-ABBOTT-07P-167-0359533-00

PATIENT
  Age: 72 Year
  Sex: Female
  Weight: 66 kg

DRUGS (5)
  1. HUMIRA [Suspect]
     Indication: RHEUMATOID ARTHRITIS
     Dates: start: 20030721
  2. LEFLUNOMIDE [Concomitant]
     Indication: DRUG USE FOR UNKNOWN INDICATION
  3. ARTHROTEC [Concomitant]
     Indication: DRUG USE FOR UNKNOWN INDICATION
  4. ALENDRONATE SODIUM [Concomitant]
     Indication: DRUG USE FOR UNKNOWN INDICATION
  5. ACETAMINOPHEN W/ CODEINE [Concomitant]
     Indication: DRUG USE FOR UNKNOWN INDICATION

REACTIONS (4)
  - DEPRESSION [None]
  - DYSARTHRIA [None]
  - PNEUMONIA ASPIRATION [None]
  - VISION BLURRED [None]
